FAERS Safety Report 6144973-8 (Version None)
Quarter: 2009Q2

REPORT INFORMATION
  Report Type: 
  Country: None (occurrence: None)
  Receive Date: 20090402
  Receipt Date: 20090402
  Transmission Date: 20091009
  Serious: Yes (Life-Threatening, Hospitalization, Other)
  Sender: FDA-Public Use
  Company Number: None

PATIENT
  Age: 14 Year
  Sex: Female
  Weight: 88.905 kg

DRUGS (4)
  1. TOPAMAX [Suspect]
     Indication: AFFECTIVE DISORDER
     Dosage: 50MG OD PO
     Route: 048
     Dates: start: 20081015, end: 20090204
  2. TOPAMAX [Suspect]
     Indication: WEIGHT CONTROL
     Dosage: 50MG OD PO
     Route: 048
     Dates: start: 20081015, end: 20090204
  3. TOPAMAX [Suspect]
     Indication: AFFECTIVE DISORDER
     Dosage: 50MG OD PO
     Route: 048
     Dates: start: 20090401, end: 20090401
  4. TOPAMAX [Suspect]
     Indication: WEIGHT CONTROL
     Dosage: 50MG OD PO
     Route: 048
     Dates: start: 20090401, end: 20090401

REACTIONS (9)
  - AGGRESSION [None]
  - ANGER [None]
  - CRYING [None]
  - DEREALISATION [None]
  - FEELING ABNORMAL [None]
  - INSOMNIA [None]
  - LOSS OF CONSCIOUSNESS [None]
  - PSYCHOTIC BEHAVIOUR [None]
  - SCREAMING [None]
